FAERS Safety Report 8817448 (Version 1)
Quarter: 2012Q4

REPORT INFORMATION
  Report Type: 
  Country: JP (occurrence: JP)
  Receive Date: 20121001
  Receipt Date: 20121001
  Transmission Date: 20130627
  Serious: Yes (Other)
  Sender: FDA-Public Use
  Company Number: JP-ASTELLAS-2011JP000698

PATIENT
  Sex: Male

DRUGS (2)
  1. VESICARE [Suspect]
     Route: 048
  2. HARNAL [Suspect]
     Route: 048

REACTIONS (1)
  - Gastric haemorrhage [Unknown]
